FAERS Safety Report 10155101 (Version 2)
Quarter: 2014Q2

REPORT INFORMATION
  Report Type: Spontaneous
  Country: US (occurrence: US)
  Receive Date: 20140506
  Receipt Date: 20140506
  Transmission Date: 20141212
  Serious: No
  Sender: FDA-Public Use
  Company Number: US-BAXTER-2014BAX019269

PATIENT
  Sex: Female

DRUGS (1)
  1. DIANEAL LOW CALCIUM [Suspect]
     Indication: PERITONEAL DIALYSIS
     Route: 033

REACTIONS (9)
  - Swelling [Unknown]
  - Drug dose omission [Unknown]
  - Weight increased [Unknown]
  - Feeling abnormal [Unknown]
  - Abnormal loss of weight [Unknown]
  - Ultrafiltration failure [Unknown]
  - Dehydration [Unknown]
  - Procedural pain [Unknown]
  - Hypertension [Unknown]
